FAERS Safety Report 17780565 (Version 1)
Quarter: 2020Q2

REPORT INFORMATION
  Report Type: Spontaneous
  Country: US (occurrence: US)
  Receive Date: 20200513
  Receipt Date: 20200513
  Transmission Date: 20200714
  Serious: Yes (Hospitalization)
  Sender: FDA-Public Use
  Company Number: None

PATIENT
  Age: 94 Year
  Sex: Male
  Weight: 75.75 kg

DRUGS (2)
  1. GABAPENTIN (GABAPENTIN 100MG CAP) [Suspect]
     Active Substance: GABAPENTIN
     Indication: BACK PAIN
     Route: 048
     Dates: start: 20191128, end: 20191202
  2. OXYCODONE AND ACETAMINOPHEN [Suspect]
     Active Substance: ACETAMINOPHEN\OXYCODONE HYDROCHLORIDE
     Indication: BACK PAIN
     Route: 048
     Dates: start: 20131101, end: 20191202

REACTIONS (7)
  - Urinary tract infection [None]
  - Pneumonia [None]
  - Urinary incontinence [None]
  - Urinary retention [None]
  - Confusional state [None]
  - Mental status changes [None]
  - Sedation [None]

NARRATIVE: CASE EVENT DATE: 20191202
